FAERS Safety Report 8273544-2 (Version None)
Quarter: 2012Q2

REPORT INFORMATION
  Report Type: 
  Country: None (occurrence: None)
  Receive Date: 20120411
  Receipt Date: 20120130
  Transmission Date: 20120825
  Serious: No
  Sender: FDA-Public Use
  Company Number: US-TEVA-2011006160

PATIENT
  Sex: Male
  Weight: 74.91 kg

DRUGS (3)
  1. OLANZAPINE [Concomitant]
     Indication: MAJOR DEPRESSION
     Dosage: QPM
     Dates: start: 20020801
  2. NUVIGIL [Suspect]
     Indication: SLEEP APNOEA SYNDROME
     Dosage: 250 MILLIGRAM;
     Route: 048
     Dates: start: 20090101
  3. NUVIGIL [Suspect]
     Indication: SOMNOLENCE

REACTIONS (1)
  - ERECTILE DYSFUNCTION [None]
